FAERS Safety Report 6408949-5 (Version None)
Quarter: 2009Q4

REPORT INFORMATION
  Report Type: 
  Country: None (occurrence: None)
  Receive Date: 20091019
  Receipt Date: 20091006
  Transmission Date: 20100525
  Serious: Yes (Hospitalization)
  Sender: FDA-Public Use
  Company Number: 397170

PATIENT
  Age: 72 Year
  Sex: Female

DRUGS (5)
  1. METHOTREXATE [Suspect]
     Indication: PSORIASIS
     Dosage: 10 MG, 1 WEEK;
  2. PREDNISOLONE [Suspect]
     Indication: PSORIATIC ARTHROPATHY
     Dosage: 4 MG, 1 DAY;
  3. GLIPIZIDE [Concomitant]
  4. METFORMIN HCL [Concomitant]
  5. HYDROCHLOROTHIAZIDE W/CILAZAPRIL [Concomitant]

REACTIONS (4)
  - BODY TINEA [None]
  - MICROSPORUM INFECTION [None]
  - ONYCHOMYCOSIS [None]
  - TINEA INFECTION [None]
